FAERS Safety Report 8890651 (Version 2)
Quarter: 2012Q4

REPORT INFORMATION
  Report Type: Report from Study
  Country: None (occurrence: US)
  Receive Date: 20121106
  Receipt Date: 20121214
  Transmission Date: 20130627
  Serious: Yes (Hospitalization, Other)
  Sender: FDA-Public Use
  Company Number: US-ABBOTT-12P-163-1002837-00

PATIENT
  Age: 59 Year
  Sex: Female
  Weight: 71.73 kg

DRUGS (5)
  1. HUMIRA PEN [Suspect]
     Indication: CROHN^S DISEASE
     Dates: start: 20121005
  2. HUMIRA PEN [Suspect]
     Indication: ENTEROCOLITIS
  3. AZATHIOPRINE [Concomitant]
     Indication: PRODUCT USED FOR UNKNOWN INDICATION
     Dosage: 2 tabs in AM and 1 tab in PM
  4. PENTASA [Concomitant]
     Indication: PRODUCT USED FOR UNKNOWN INDICATION
  5. BUDESONIDE [Concomitant]
     Indication: PRODUCT USED FOR UNKNOWN INDICATION

REACTIONS (1)
  - Intestinal obstruction [Recovering/Resolving]
